FAERS Safety Report 4400976-2 (Version None)
Quarter: 2004Q3

REPORT INFORMATION
  Report Type: 
  Country: None (occurrence: None)
  Receive Date: 20040907
  Receipt Date: 20030902
  Transmission Date: 20050211
  Serious: Yes (Hospitalization)
  Sender: FDA-Public Use
  Company Number: US-BRISTOL-MYERS SQUIBB COMPANY-12371894

PATIENT
  Sex: Female
  Weight: 45 kg

DRUGS (9)
  1. COUMADIN [Suspect]
     Indication: PULMONARY EMBOLISM
     Route: 048
     Dates: end: 20030815
  2. QUINIDINE HCL [Concomitant]
     Indication: MUSCLE CRAMP
     Dosage: AT BEDTIME
  3. LEVOTHYROXINE SODIUM [Concomitant]
  4. FERROUS SULFATE TAB [Concomitant]
     Dosage: DOSE: 1 TABLET 3X/DAY.
  5. M.V.I. [Concomitant]
  6. EFFEXOR [Concomitant]
     Dosage: DOSE : 1 TABLET 3 X/DAY.
  7. TRAZODONE HCL [Concomitant]
     Dosage: AT BEDTIME.
  8. PEPCID [Concomitant]
     Dosage: DOSE: 1 TABLET TWICE DAILY.
  9. LASIX [Concomitant]
     Dosage: DOSE: 1 TABLET DAILY.

REACTIONS (3)
  - DRUG LEVEL INCREASED [None]
  - HOSPITALISATION [None]
  - INTERNATIONAL NORMALISED RATIO INCREASED [None]
